FAERS Safety Report 6421499-5 (Version None)
Quarter: 2009Q4

REPORT INFORMATION
  Report Type: 
  Country: None (occurrence: None)
  Receive Date: 20091030
  Receipt Date: 20090929
  Transmission Date: 20100525
  Serious: No
  Sender: FDA-Public Use
  Company Number: US-BAYER-200922008NA

PATIENT
  Sex: Female

DRUGS (1)
  1. MAGNEVIST [Suspect]
     Indication: DRUG USE FOR UNKNOWN INDICATION
     Dosage: TOTAL DAILY DOSE: 14 ML  UNIT DOSE: 15 ML
     Dates: start: 20090518, end: 20090518

REACTIONS (3)
  - EYE SWELLING [None]
  - OCULAR HYPERAEMIA [None]
  - URTICARIA [None]
